FAERS Safety Report 21311264 (Version 1)
Quarter: 2022Q3

REPORT INFORMATION
  Report Type: Spontaneous
  Country: US (occurrence: None)
  Receive Date: 20220909
  Receipt Date: 20220909
  Transmission Date: 20221027
  Serious: No
  Sender: FDA-Public Use
  Company Number: US-ARIS GLOBAL-202202-0282

PATIENT
  Sex: Female

DRUGS (16)
  1. OXERVATE [Suspect]
     Active Substance: CENEGERMIN-BKBJ
     Indication: Neurotrophic keratopathy
     Route: 047
     Dates: start: 20220127
  2. BISOPROLOL FUMARATE\HYDROCHLOROTHIAZIDE [Concomitant]
     Active Substance: BISOPROLOL FUMARATE\HYDROCHLOROTHIAZIDE
  3. VITAMINS [Concomitant]
     Active Substance: VITAMINS
  4. OMEGA-3 ACIDS [Concomitant]
     Active Substance: OMEGA-3 FATTY ACIDS
  5. VITAMIN D3 [Concomitant]
     Active Substance: CHOLECALCIFEROL
     Dosage: 10(400)/ML
  6. IRON 325 [Concomitant]
     Dosage: (65) MG
  7. TYLENOL [Concomitant]
     Active Substance: ACETAMINOPHEN
  8. TIZANIDINE HYDROCHLORIDE [Concomitant]
     Active Substance: TIZANIDINE HYDROCHLORIDE
  9. ELIQUIS [Concomitant]
     Active Substance: APIXABAN
  10. LISINOPRIL [Concomitant]
     Active Substance: LISINOPRIL
  11. ATORVASTATIN CALCIUM [Concomitant]
     Active Substance: ATORVASTATIN CALCIUM
  12. PATADAY ONCE DAILY RELIEF [Concomitant]
     Active Substance: OLOPATADINE HYDROCHLORIDE
  13. VALACYCLOVIR [Concomitant]
     Active Substance: VALACYCLOVIR HYDROCHLORIDE
  14. TIMOLOL MALEATE [Concomitant]
     Active Substance: TIMOLOL MALEATE
  15. REFRESH PLUS [Concomitant]
     Active Substance: CARBOXYMETHYLCELLULOSE SODIUM
  16. OFLOXACIN [Concomitant]
     Active Substance: OFLOXACIN

REACTIONS (6)
  - Eyelid pain [Unknown]
  - Eye pruritus [Unknown]
  - Vision blurred [Unknown]
  - Product administration error [Unknown]
  - Off label use [Unknown]
  - Eye pain [Unknown]
